FAERS Safety Report 9698615 (Version 2)
Quarter: 2013Q4

REPORT INFORMATION
  Report Type: Spontaneous
  Country: JP (occurrence: JP)
  Receive Date: 20131120
  Receipt Date: 20131209
  Transmission Date: 20140711
  Serious: No
  Sender: FDA-Public Use
  Company Number: JP-009507513-1311JPN007129

PATIENT
  Age: 83 Year
  Sex: Male

DRUGS (7)
  1. JANUVIA TABLETS 50MG [Suspect]
     Dosage: 50 MG, 1/1 DAY
     Route: 048
     Dates: start: 201310, end: 20131025
  2. JANUVIA TABLETS 50MG [Suspect]
     Dosage: DAILY DOSAGE UNKNOWN
     Route: 048
  3. EXFORGE [Concomitant]
     Dosage: DAILY DOSAGE UNKNOWN
     Route: 048
     Dates: start: 201310
  4. EXFORGE [Concomitant]
     Dosage: DAILY DOSAGE UNKNOWN
     Route: 048
  5. ZETIA TABLETS 10MG [Concomitant]
     Dosage: 10 MG, 1/1 DAY
     Route: 048
     Dates: start: 201310
  6. ZETIA TABLETS 10MG [Concomitant]
     Dosage: DAILY DOSAGE UNKNOWN
     Route: 048
  7. DIGITALIS [Concomitant]
     Dosage: UNK
     Route: 065

REACTIONS (1)
  - Oedema [Recovering/Resolving]
